FAERS Safety Report 4478651-8 (Version None)
Quarter: 2004Q4

REPORT INFORMATION
  Report Type: 
  Country: None (occurrence: None)
  Receive Date: 20041014
  Receipt Date: 20041006
  Transmission Date: 20050328
  Serious: No
  Sender: FDA-Public Use
  Company Number: 2004UW20871

PATIENT
  Age: 74 Year
  Sex: Female
  Weight: 56.245 kg

DRUGS (7)
  1. IRESSA [Suspect]
     Indication: NON-SMALL CELL LUNG CANCER
     Dosage: 250 MG QD PO
     Route: 048
  2. PEPCID [Concomitant]
  3. DEXAMETHASONE [Concomitant]
  4. PAXIL [Concomitant]
  5. ARIMIDEX [Concomitant]
  6. LIPITOR [Concomitant]
  7. ALTACE [Concomitant]

REACTIONS (1)
  - PNEUMONIA [None]
